FAERS Safety Report 17909735 (Version 1)
Quarter: 2020Q2

REPORT INFORMATION
  Report Type: Spontaneous
  Country: IT (occurrence: IT)
  Receive Date: 20200617
  Receipt Date: 20200617
  Transmission Date: 20200714
  Serious: Yes (Other)
  Sender: FDA-Public Use
  Company Number: NVSC2020IT148763

PATIENT
  Age: 77 Year
  Sex: Male

DRUGS (2)
  1. ADALIMUMAB [Suspect]
     Active Substance: ADALIMUMAB
     Indication: PSORIATIC ARTHROPATHY
     Dosage: UNK(INFUSION)
     Route: 058
  2. CERTOLIZUMAB [Suspect]
     Active Substance: CERTOLIZUMAB
     Indication: PRODUCT USED FOR UNKNOWN INDICATION
     Dosage: UNK(INFUSION)
     Route: 065

REACTIONS (3)
  - Drug ineffective [Unknown]
  - Drug specific antibody present [Not Recovered/Not Resolved]
  - Drug specific antibody [Not Recovered/Not Resolved]
